FAERS Safety Report 7784513-0 (Version None)
Quarter: 2011Q3

REPORT INFORMATION
  Report Type: 
  Country: None (occurrence: None)
  Receive Date: 20110928
  Receipt Date: 20110919
  Transmission Date: 20111222
  Serious: Yes (Other)
  Sender: FDA-Public Use
  Company Number: CA-JNJFOC-20110908753

PATIENT
  Sex: Female
  Weight: 48 kg

DRUGS (10)
  1. SULFASALAZINE [Concomitant]
  2. REMICADE [Suspect]
     Indication: RHEUMATOID ARTHRITIS
     Route: 042
     Dates: start: 20060101
  3. SYNTHROID [Concomitant]
  4. CRESTOR [Concomitant]
  5. COZAAR [Concomitant]
  6. FOSAMAX [Concomitant]
  7. CALCIUM AND VIT D [Concomitant]
  8. PANTOPRAZOLE SODIUM [Concomitant]
  9. ALL OTHER THERAPEUTIC PRODUCTS [Concomitant]
  10. FERROUS SULFATE TAB [Concomitant]

REACTIONS (1)
  - BONE INFARCTION [None]
